FAERS Safety Report 14052099 (Version 1)
Quarter: 2017Q4

REPORT INFORMATION
  Report Type: Spontaneous
  Country: US (occurrence: US)
  Receive Date: 20171005
  Receipt Date: 20171005
  Transmission Date: 20180321
  Serious: Yes (Hospitalization, Other)
  Sender: FDA-Public Use
  Company Number: US-ZYDUS-016870

PATIENT
  Age: 67 Year
  Sex: Female

DRUGS (5)
  1. MORPHINE/MORPHINE HYDROCHLORIDE/MORPHINE SULFATE/MORPHINE TARTRATE [Suspect]
     Active Substance: MORPHINE\MORPHINE HYDROCHLORIDE\MORPHINE SULFATE\MORPHINE TARTRATE
     Indication: BACK PAIN
     Route: 040
  2. HYDROCODONE [Suspect]
     Active Substance: HYDROCODONE
     Indication: BREAKTHROUGH PAIN
     Route: 065
  3. MORPHINE/MORPHINE HYDROCHLORIDE/MORPHINE SULFATE/MORPHINE TARTRATE [Suspect]
     Active Substance: MORPHINE\MORPHINE HYDROCHLORIDE\MORPHINE SULFATE\MORPHINE TARTRATE
     Indication: BACK PAIN
     Route: 037
     Dates: start: 2004, end: 20130627
  4. FENTANYL. [Suspect]
     Active Substance: FENTANYL
     Indication: PAIN
     Route: 062
     Dates: start: 2009
  5. OXYCODONE [Suspect]
     Active Substance: OXYCODONE
     Indication: BREAKTHROUGH PAIN
     Route: 065

REACTIONS (13)
  - Bursitis [Unknown]
  - Drug ineffective [Unknown]
  - Pneumonia [Unknown]
  - Small intestinal obstruction [Unknown]
  - Movement disorder [Recovered/Resolved]
  - Pain [Recovered/Resolved]
  - Paraesthesia [Unknown]
  - Sensory disturbance [Unknown]
  - Lumbosacral radiculopathy [Unknown]
  - Hypoaesthesia [Unknown]
  - Anxiety [Unknown]
  - Constipation [Unknown]
  - Lumbosacral plexopathy [Unknown]

NARRATIVE: CASE EVENT DATE: 201110
